FAERS Safety Report 19269954 (Version 2)
Quarter: 2021Q3

REPORT INFORMATION
  Report Type: Spontaneous
  Country: CA (occurrence: CA)
  Receive Date: 20210518
  Receipt Date: 20210712
  Transmission Date: 20211014
  Serious: Yes (Other)
  Sender: FDA-Public Use
  Company Number: CA-NALPROPION PHARMACEUTICALS INC.-2021-013027

PATIENT

DRUGS (2)
  1. CONTRAVE [Suspect]
     Active Substance: BUPROPION HYDROCHLORIDE\NALTREXONE HYDROCHLORIDE
     Dosage: 90/8 MG; (1 DOSAGE FORMS,1 IN 1 D)
     Route: 048
     Dates: start: 2021
  2. CONTRAVE [Suspect]
     Active Substance: BUPROPION HYDROCHLORIDE\NALTREXONE HYDROCHLORIDE
     Indication: WEIGHT CONTROL
     Dosage: 90/8 MG; AROUND 6AM DAILY; TAKING FOR ABOUT 4.5 WEEKS
     Route: 048
     Dates: start: 20210401, end: 2021

REACTIONS (3)
  - Hyperhidrosis [Recovered/Resolved]
  - Drug titration error [Unknown]
  - Pleurisy [Recovered/Resolved]

NARRATIVE: CASE EVENT DATE: 202104
